FAERS Safety Report 21661205 (Version 1)
Quarter: 2022Q4

REPORT INFORMATION
  Report Type: Spontaneous
  Country: FR (occurrence: FR)
  Receive Date: 20221130
  Receipt Date: 20221130
  Transmission Date: 20230112
  Serious: Yes (Hospitalization)
  Sender: FDA-Public Use
  Company Number: FR-AFSSAPS-MA20224434

PATIENT
  Age: 15 Year
  Sex: Female
  Weight: 59.5 kg

DRUGS (1)
  1. ACETAMINOPHEN [Suspect]
     Active Substance: ACETAMINOPHEN
     Indication: Poisoning deliberate
     Dosage: 10 GRAM IN A SINGLE DOSE
     Route: 048
     Dates: start: 20221016

REACTIONS (2)
  - Vomiting [Recovered/Resolved]
  - Creatinine renal clearance increased [Recovered/Resolved]

NARRATIVE: CASE EVENT DATE: 20221017
